FAERS Safety Report 23201211 (Version 1)
Quarter: 2023Q4

REPORT INFORMATION
  Report Type: Spontaneous
  Country: IT (occurrence: IT)
  Receive Date: 20231118
  Receipt Date: 20231118
  Transmission Date: 20240110
  Serious: Yes (Hospitalization)
  Sender: FDA-Public Use
  Company Number: None

PATIENT
  Age: 48 Year
  Sex: Male

DRUGS (3)
  1. RAMIPRIL [Suspect]
     Active Substance: RAMIPRIL
     Indication: Suicide attempt
     Dosage: 2 BOXES (NOT KNOWN WHETHER 14 OR 28 TABLETS) OF 5 MG IN A SINGLE DOSE
     Route: 065
     Dates: start: 20231012
  2. PATROL [Suspect]
     Active Substance: ACETAMINOPHEN\TRAMADOL HYDROCHLORIDE
     Indication: Suicide attempt
     Dosage: 10 TABLETS: 375 MG OF TRAMADOL + 3250 MG OF PARACETAMOL IN A SINGLE DOSE
     Route: 065
     Dates: start: 20231012
  3. BROMAZEPAM [Suspect]
     Active Substance: BROMAZEPAM
     Indication: Suicide attempt
     Dosage: 2 BOTTLES OF 20 ML (2.5 MG/ML): 100 MG
     Route: 065
     Dates: start: 20231012

REACTIONS (3)
  - Sopor [Recovered/Resolved]
  - Cognitive disorder [Recovered/Resolved]
  - Suicide attempt [Recovered/Resolved]

NARRATIVE: CASE EVENT DATE: 20231012
